FAERS Safety Report 7992873-0 (Version None)
Quarter: 2011Q4

REPORT INFORMATION
  Report Type: 
  Country: None (occurrence: None)
  Receive Date: 20111219
  Receipt Date: 20110930
  Transmission Date: 20120403
  Serious: No
  Sender: FDA-Public Use
  Company Number: US-ASTRAZENECA-2011SE58781

PATIENT
  Sex: Female

DRUGS (2)
  1. INSULIN [Concomitant]
  2. CRESTOR [Suspect]
     Indication: HYPERCHOLESTEROLAEMIA
     Route: 048
     Dates: end: 20110923

REACTIONS (2)
  - PAIN IN EXTREMITY [None]
  - PAIN [None]
